FAERS Safety Report 23792718 (Version 2)
Quarter: 2024Q2

REPORT INFORMATION
  Report Type: Spontaneous
  Country: CA (occurrence: CA)
  Receive Date: 20240429
  Receipt Date: 20240621
  Transmission Date: 20240716
  Serious: Yes (Other)
  Sender: FDA-Public Use
  Company Number: CA-CELLTRION INC.-2024CA009804

PATIENT

DRUGS (15)
  1. INFLECTRA [Suspect]
     Active Substance: INFLIXIMAB-DYYB
     Indication: Crohn^s disease
     Dosage: 5 MG/KG (WEEK 0,2,6 THEN EVERY 8WEEKS)
     Route: 042
     Dates: start: 20210925
  2. INFLECTRA [Suspect]
     Active Substance: INFLIXIMAB-DYYB
     Dosage: 5 MG/KG (WEEK 0,2,6 THEN EVERY 8WEEKS)
     Route: 042
     Dates: start: 20240222
  3. INFLECTRA [Suspect]
     Active Substance: INFLIXIMAB-DYYB
     Dosage: 330 MG (5 MG/KG), 8 WEEKS (WEEK 0,2,6 THEN EVERY 8 WEEKS)
     Route: 042
     Dates: start: 20240418
  4. INFLECTRA [Suspect]
     Active Substance: INFLIXIMAB-DYYB
     Dosage: 5 MG/KG ,WEEK 0,2,6 THEN Q8WEEKS(320 MG, AFTER 7 WEEKS AND 6 DAYS.)
     Route: 042
     Dates: start: 20240612
  5. AMLODIPINE [Concomitant]
     Active Substance: AMLODIPINE BESYLATE
     Dosage: 1 DF
  6. CALCIUM [Concomitant]
     Active Substance: CALCIUM
     Dosage: 1 DF
  7. CORTISONE [Concomitant]
     Active Substance: CORTISONE
     Dosage: 1 DF
     Dates: start: 20230110, end: 20230114
  8. DOXYCYCLIN AL [DOXYCYCLINE MONOHYDRATE] [Concomitant]
     Dosage: 1 DF
     Route: 048
     Dates: start: 20230110, end: 20230117
  9. FLOVENT [Concomitant]
     Active Substance: FLUTICASONE PROPIONATE
     Dosage: 1 DF
     Route: 055
     Dates: start: 20230110
  10. FOLIC ACID [Concomitant]
     Active Substance: FOLIC ACID
     Dosage: 1 DF
  11. METHOTREXATE [Concomitant]
     Active Substance: METHOTREXATE
     Dosage: 15 MG, WEEKLY (DOSE DECREASED TO 4 TABLETS)
     Route: 065
     Dates: start: 20160422
  12. PANTOPRAZOLE [Concomitant]
     Active Substance: PANTOPRAZOLE
     Dosage: 1 DF
  13. VITAMIN B12 [Concomitant]
     Active Substance: CYANOCOBALAMIN
     Dosage: 1 DF
  14. CHOLECALCIFEROL [Concomitant]
     Active Substance: CHOLECALCIFEROL
     Dosage: 1 DF
  15. VENTOLIN [Concomitant]
     Active Substance: ALBUTEROL SULFATE
     Dosage: 1 DF
     Route: 055
     Dates: start: 20230110

REACTIONS (6)
  - Rib fracture [Not Recovered/Not Resolved]
  - Pain [Not Recovered/Not Resolved]
  - Spinal osteoarthritis [Not Recovered/Not Resolved]
  - Osteoarthritis [Not Recovered/Not Resolved]
  - Stress [Not Recovered/Not Resolved]
  - Condition aggravated [Not Recovered/Not Resolved]

NARRATIVE: CASE EVENT DATE: 20240101
